FAERS Safety Report 4358940-8 (Version None)
Quarter: 2004Q2

REPORT INFORMATION
  Report Type: 
  Country: None (occurrence: None)
  Receive Date: 20040511
  Receipt Date: 20040428
  Transmission Date: 20050107
  Serious: Yes (Death)
  Sender: FDA-Public Use
  Company Number: 2004SE00729

PATIENT
  Age: 59 Year
  Sex: Male

DRUGS (5)
  1. SEROQUEL [Suspect]
     Indication: PSYCHOTIC DISORDER
     Dosage: 300 MG DAILY PO
     Route: 048
     Dates: start: 20031219
  2. ZOLOFT [Suspect]
     Dosage: 50 MG DAILY
     Dates: start: 20040127
  3. TEMAZEPANUM [Concomitant]
  4. RANITIDINUM [Concomitant]
  5. OXAZEPAM [Concomitant]

REACTIONS (5)
  - COLONIC HAEMORRHAGE [None]
  - DISSEMINATED INTRAVASCULAR COAGULATION [None]
  - LIVER DISORDER [None]
  - NEUROLEPTIC MALIGNANT SYNDROME [None]
  - PULMONARY OEDEMA [None]
